FAERS Safety Report 7770468-1 (Version None)
Quarter: 2011Q3

REPORT INFORMATION
  Report Type: 
  Country: None (occurrence: None)
  Receive Date: 20110922
  Receipt Date: 20100730
  Transmission Date: 20111222
  Serious: No
  Sender: FDA-Public Use
  Company Number: US-ASTRAZENECA-2010SE35779

PATIENT
  Age: 39 Year
  Sex: Male
  Weight: 113.4 kg

DRUGS (2)
  1. SEROQUEL [Suspect]
     Route: 048
  2. SEROQUEL [Suspect]
     Indication: BIPOLAR DISORDER
     Route: 048
     Dates: start: 20090101

REACTIONS (4)
  - INCORRECT DOSE ADMINISTERED [None]
  - DRUG DISPENSING ERROR [None]
  - DRUG SCREEN FALSE POSITIVE [None]
  - SOMNOLENCE [None]
